FAERS Safety Report 5070783-9 (Version None)
Quarter: 2006Q3

REPORT INFORMATION
  Report Type: 
  Country: None (occurrence: None)
  Receive Date: 20060804
  Receipt Date: 20060404
  Transmission Date: 20061208
  Serious: No
  Sender: FDA-Public Use
  Company Number: US-GLAXOSMITHKLINE-A0600276A

PATIENT
  Age: 54 Year
  Sex: Male

DRUGS (2)
  1. NICORETTE [Suspect]
     Dates: start: 20060317, end: 20060403
  2. NICODERM CQ [Suspect]

REACTIONS (4)
  - APPLICATION SITE ERYTHEMA [None]
  - APPLICATION SITE PAIN [None]
  - HICCUPS [None]
  - STOMACH DISCOMFORT [None]
